FAERS Safety Report 4637095-6 (Version None)
Quarter: 2005Q2

REPORT INFORMATION
  Report Type: 
  Country: None (occurrence: None)
  Receive Date: 20050325
  Receipt Date: 20050111
  Transmission Date: 20051028
  Serious: No
  Sender: FDA-Public Use
  Company Number: USA041082153

PATIENT
  Age: 57 Year
  Sex: Female
  Weight: 45 kg

DRUGS (3)
  1. FORTEO [Suspect]
     Indication: OSTEOPOROSIS
     Dosage: 20 UG/1 DAY
     Dates: start: 20041025
  2. EVISTA [Suspect]
     Indication: OSTEOPENIA
  3. FOSAMAX [Concomitant]

REACTIONS (6)
  - DRUG INEFFECTIVE [None]
  - FALL [None]
  - FRACTURE [None]
  - HEART RATE INCREASED [None]
  - INJECTION SITE RASH [None]
  - INJECTION SITE REACTION [None]
